FAERS Safety Report 8749354 (Version 4)
Quarter: 2013Q1

REPORT INFORMATION
  Report Type: Spontaneous
  Country: JP (occurrence: None)
  Receive Date: 20120809
  Receipt Date: 20121015
  Transmission Date: 20140127
  Serious: Yes (Hospitalization)
  Sender: FDA-Public Use
  Company Number: JP-20120041

PATIENT
  Age: 72 Year
  Sex: Male

DRUGS (11)
  1. ETHIODIZED OIL [Suspect]
     Indication: MEDICAL DEVICE COMPLICATION
     Route: 013
     Dates: start: 20110209, end: 20110209
  2. FARMORUBICIN [Suspect]
     Route: 013
     Dates: start: 20110209, end: 20110209
  3. MITOMYCIN [Suspect]
     Route: 013
     Dates: start: 20110209, end: 20110209
  4. BROTIZOLAM (BROTIZOLAM) (BROTIZOLAM) [Concomitant]
  5. ALLEGRA (FEXOFENADINE) (FEXOFENADINE) [Concomitant]
  6. URSO (URSODEOXYCHOLIC ACID) (URSODEOXYCHOLIC ACID) [Concomitant]
  7. ALFACALCIDOL (ALFACALCIDOL) (ALFACALCIDOL) [Concomitant]
  8. CALTAN (PRECIPITATED CALCIUM CARBON) (PRECIPITATED  CALCIUM CARBONATE) [Concomitant]
  9. LASIX (FRUSEMIDE) (FRUSEMIDE) [Concomitant]
  10. COBERCYL (PERINDOPRIL ERBUMINE) (PERINDOPRIL ERBUMINE) [Concomitant]
  11. JEL PART (GELATIN) (GELATIN) [Concomitant]

REACTIONS (4)
  - Off label use [None]
  - Liver abscess [None]
  - Klebsiella infection [None]
  - Blood culture positive [None]
